FAERS Safety Report 8401864-7 (Version None)
Quarter: 2012Q2

REPORT INFORMATION
  Report Type: 
  Country: None (occurrence: None)
  Receive Date: 20120601
  Receipt Date: 20120524
  Transmission Date: 20120825
  Serious: Yes (Other)
  Sender: FDA-Public Use
  Company Number: GB-JNJFOC-20120108697

PATIENT
  Sex: Female
  Weight: 70.76 kg

DRUGS (2)
  1. PALIPERIDONE [Suspect]
     Indication: SCHIZOPHRENIA
     Route: 030
     Dates: start: 20111101
  2. PALIPERIDONE [Suspect]
     Route: 030
     Dates: start: 20110812

REACTIONS (6)
  - MUSCULOSKELETAL STIFFNESS [None]
  - DEPRESSION [None]
  - GALACTORRHOEA [None]
  - BREAST TENDERNESS [None]
  - BREAST MASS [None]
  - SCHIZOPHRENIA [None]
